FAERS Safety Report 6625821-6 (Version None)
Quarter: 2010Q1

REPORT INFORMATION
  Report Type: 
  Country: None (occurrence: None)
  Receive Date: 20100305
  Receipt Date: 20100222
  Transmission Date: 20100710
  Serious: Yes (Other)
  Sender: FDA-Public Use
  Company Number: 10-000280

PATIENT
  Age: 13 Year
  Sex: Female
  Weight: 72.6 kg

DRUGS (1)
  1. DORYX [Suspect]
     Indication: ACNE
     Dosage: 150 MG, QD, ORAL
     Route: 048
     Dates: start: 20090401, end: 20090501

REACTIONS (7)
  - ANXIETY [None]
  - DEPRESSION [None]
  - JOINT INJURY [None]
  - MOOD SWINGS [None]
  - PERSONALITY DISORDER [None]
  - SELF INJURIOUS BEHAVIOUR [None]
  - SUICIDAL IDEATION [None]
